FAERS Safety Report 4357549-X (Version None)
Quarter: 2004Q2

REPORT INFORMATION
  Report Type: 
  Country: None (occurrence: None)
  Receive Date: 20040510
  Receipt Date: 20040426
  Transmission Date: 20050107
  Serious: Yes (Death)
  Sender: FDA-Public Use
  Company Number: 03P-118-0244249-00

PATIENT
  Age: 22 Year
  Sex: Female

DRUGS (21)
  1. VALPROATE SODIUM [Suspect]
     Indication: MOOD SWINGS
     Dosage: SEE IMAGE
     Route: 048
     Dates: start: 20000727, end: 20000729
  2. VALPROATE SODIUM [Suspect]
     Indication: MOOD SWINGS
     Dosage: SEE IMAGE
     Route: 048
     Dates: start: 20000730, end: 20000803
  3. VALPROATE SODIUM [Suspect]
     Indication: MOOD SWINGS
     Dosage: SEE IMAGE
     Route: 048
     Dates: start: 20000804, end: 20000807
  4. VALPROATE SODIUM [Suspect]
     Indication: MOOD SWINGS
     Dosage: SEE IMAGE
     Route: 048
     Dates: start: 20000808, end: 20000912
  5. FLUOXETINE [Suspect]
     Indication: ANXIETY DISORDER
     Dosage: SEE IMAGE
     Route: 048
     Dates: start: 20000321, end: 20000429
  6. FLUOXETINE [Suspect]
     Indication: ANXIETY DISORDER
     Dosage: SEE IMAGE
     Route: 048
     Dates: start: 20000430, end: 20000523
  7. FLUOXETINE [Suspect]
     Indication: ANXIETY DISORDER
     Dosage: SEE IMAGE
     Route: 048
     Dates: start: 20000524, end: 20000912
  8. CLONAZEPAM [Suspect]
     Indication: SOCIAL AVOIDANT BEHAVIOUR
     Dosage: SEE IMAGE
     Route: 048
     Dates: start: 20000128, end: 20000316
  9. CLONAZEPAM [Suspect]
     Indication: SOCIAL AVOIDANT BEHAVIOUR
     Dosage: SEE IMAGE
     Route: 048
     Dates: start: 20000317, end: 20000320
  10. CLONAZEPAM [Suspect]
     Indication: SOCIAL AVOIDANT BEHAVIOUR
     Dosage: SEE IMAGE
     Route: 048
     Dates: start: 20000321, end: 20000412
  11. CLONAZEPAM [Suspect]
     Indication: SOCIAL AVOIDANT BEHAVIOUR
     Dosage: SEE IMAGE
     Route: 048
     Dates: start: 20000413, end: 20000515
  12. CLONAZEPAM [Suspect]
     Indication: SOCIAL AVOIDANT BEHAVIOUR
     Dosage: SEE IMAGE
     Route: 048
     Dates: start: 20000516, end: 20000605
  13. CLONAZEPAM [Suspect]
     Indication: SOCIAL AVOIDANT BEHAVIOUR
     Dosage: SEE IMAGE
     Route: 048
     Dates: start: 20000606, end: 20000717
  14. CLONAZEPAM [Suspect]
     Indication: SOCIAL AVOIDANT BEHAVIOUR
     Dosage: SEE IMAGE
     Route: 048
     Dates: start: 20000718, end: 20000726
  15. CLONAZEPAM [Suspect]
     Indication: SOCIAL AVOIDANT BEHAVIOUR
     Dosage: SEE IMAGE
     Route: 048
     Dates: start: 20000727, end: 20000912
  16. PIZOTIFEN MALEATE [Suspect]
     Indication: HEADACHE
     Dosage: SEE IMAGE
     Route: 048
     Dates: end: 20000515
  17. PIZOTIFEN MALEATE [Suspect]
     Indication: HEADACHE
     Dosage: SEE IMAGE
     Route: 048
     Dates: start: 20000516, end: 20000912
  18. LORAZEPAM [Concomitant]
  19. ZUCLOPENTHIXOL [Concomitant]
  20. TEMAZEPAM [Concomitant]
  21. ACETAMINOPHEN [Concomitant]

REACTIONS (21)
  - ABNORMAL BEHAVIOUR [None]
  - AGITATION [None]
  - AGORAPHOBIA [None]
  - ANOREXIA [None]
  - ANXIETY [None]
  - COMPLETED SUICIDE [None]
  - DEPRESSION [None]
  - DRUG DEPENDENCE [None]
  - DRUG WITHDRAWAL SYNDROME [None]
  - EATING DISORDER [None]
  - HYPERVENTILATION [None]
  - LACERATION [None]
  - MANIA [None]
  - MOOD SWINGS [None]
  - PERSONALITY CHANGE [None]
  - RESTLESSNESS [None]
  - SUICIDAL IDEATION [None]
  - TEARFULNESS [None]
  - VISUAL ACUITY REDUCED [None]
  - VISUAL DISTURBANCE [None]
  - WEIGHT DECREASED [None]
